FAERS Safety Report 5282931-6 (Version None)
Quarter: 2007Q1

REPORT INFORMATION
  Report Type: 
  Country: None (occurrence: None)
  Receive Date: 20070328
  Receipt Date: 20070328
  Transmission Date: 20070707
  Serious: Yes (Other)
  Sender: FDA-Public Use
  Company Number: None

PATIENT
  Age: 63 Year
  Sex: Male
  Weight: 152.9 kg

DRUGS (17)
  1. ISOSORBIDE MONONITRATE [Suspect]
  2. FUROSEMIDE [Concomitant]
  3. LANOXIN [Concomitant]
  4. TRAMADOL HCL [Concomitant]
  5. CYCLOBENZAPRINE HCL [Concomitant]
  6. SPIRONOLACTONE [Concomitant]
  7. COUMADIN [Concomitant]
  8. GABAPENTIN [Concomitant]
  9. ISOSORBIDE MONONITRATE [Concomitant]
  10. METFORMIN HCL [Concomitant]
  11. INSULIN NOVOLIN [Concomitant]
  12. ROSIGLITAZONE MALEATE [Concomitant]
  13. HYDROCORTISONE/LIDOCAINE [Concomitant]
  14. METOPROLOL SUCCINATE [Concomitant]
  15. CLOPIDOGREL BISULFATE [Concomitant]
  16. POTASSIUM CHLORIDE [Concomitant]
  17. ALUMINUM ACETATE [Concomitant]

REACTIONS (1)
  - URTICARIA [None]
